FAERS Safety Report 4574547-1 (Version None)
Quarter: 2005Q1

REPORT INFORMATION
  Report Type: 
  Country: None (occurrence: None)
  Receive Date: 20050118
  Receipt Date: 20041007
  Transmission Date: 20050727
  Serious: Yes (Life-Threatening, Disabling, Other)
  Sender: FDA-Public Use
  Company Number: HQWYE612207OCT04

PATIENT
  Age: 56 Year
  Sex: Female
  Weight: 47.22 kg

DRUGS (1)
  1. PREMPRO [Suspect]
     Indication: MENOPAUSE
     Dosage: 0.625MG/ 2.5MG THEN REDUCED TO 0.45MG/1.5MG BEFORE WITHDRAWN, ORAL
     Route: 048
     Dates: start: 20000203, end: 20040601

REACTIONS (1)
  - BREAST CANCER [None]
